FAERS Safety Report 10026900 (Version 2)
Quarter: 2014Q2

REPORT INFORMATION
  Report Type: Spontaneous
  Country: FR (occurrence: FR)
  Receive Date: 20140321
  Receipt Date: 20140429
  Transmission Date: 20141212
  Serious: Yes (Death, Other)
  Sender: FDA-Public Use
  Company Number: FR-CELGENEUS-056-POMAL-14031873

PATIENT
  Sex: Female

DRUGS (10)
  1. IMNOVID [Suspect]
     Indication: PLASMA CELL MYELOMA
     Route: 048
     Dates: start: 201401
  2. CLAMOXYL [Concomitant]
     Indication: PHARYNGITIS
     Route: 065
     Dates: start: 201402
  3. ZINNAT [Concomitant]
     Indication: PHARYNGITIS
     Route: 065
     Dates: start: 2014
  4. CIFLOX [Concomitant]
     Indication: PHARYNGITIS
     Route: 065
     Dates: start: 2014
  5. ROCEPHIN [Concomitant]
     Indication: PHARYNGITIS
     Route: 041
     Dates: start: 2014
  6. ROVAMYCINE [Concomitant]
     Indication: ANTIBIOTIC THERAPY
     Route: 065
     Dates: start: 2014
  7. TAZOCILLINE [Concomitant]
     Indication: ANTIBIOTIC THERAPY
     Route: 065
     Dates: start: 2014
  8. RED BLOOD CELLS [Concomitant]
     Indication: PANCYTOPENIA
     Route: 065
     Dates: start: 2014
  9. DEXAMETHASONE [Concomitant]
     Indication: PRODUCT USED FOR UNKNOWN INDICATION
     Route: 065
  10. ASPIRINE [Concomitant]
     Indication: THROMBOSIS PROPHYLAXIS
     Route: 065

REACTIONS (3)
  - Pancytopenia [Fatal]
  - Influenza [Not Recovered/Not Resolved]
  - Acute respiratory distress syndrome [Not Recovered/Not Resolved]
